FAERS Safety Report 25368945 (Version 1)
Quarter: 2025Q2

REPORT INFORMATION
  Report Type: Spontaneous
  Country: GB (occurrence: GB)
  Receive Date: 20250528
  Receipt Date: 20250528
  Transmission Date: 20250717
  Serious: Yes (Other)
  Sender: MYLAN
  Company Number: None

PATIENT
  Sex: Female

DRUGS (1)
  1. CITALOPRAM [Suspect]
     Active Substance: CITALOPRAM
     Indication: Anxiety

REACTIONS (3)
  - Disorientation [Not Recovered/Not Resolved]
  - Vertigo [Not Recovered/Not Resolved]
  - Electric shock sensation [Not Recovered/Not Resolved]
